FAERS Safety Report 4321997-4 (Version None)
Quarter: 2004Q1

REPORT INFORMATION
  Report Type: 
  Country: None (occurrence: None)
  Receive Date: 20040319
  Receipt Date: 20020520
  Transmission Date: 20041129
  Serious: Yes (Disabling)
  Sender: FDA-Public Use
  Company Number: 200116879

PATIENT
  Age: 88 Year
  Sex: Female
  Weight: 47.6277 kg

DRUGS (1)
  1. LUMIGAN [Suspect]
     Indication: GLAUCOMA
     Dosage: 2 DROP QD EYE
     Route: 047
     Dates: start: 20011018, end: 20011025

REACTIONS (7)
  - EYE PAIN [None]
  - FACIAL PAIN [None]
  - IRITIS [None]
  - MACULAR OEDEMA [None]
  - VISION BLURRED [None]
  - VISUAL ACUITY REDUCED [None]
  - VITREOUS FLOATERS [None]
